FAERS Safety Report 9548643 (Version 1)
Quarter: 2013Q3

REPORT INFORMATION
  Report Type: Spontaneous
  Country: US (occurrence: US)
  Receive Date: 20130924
  Receipt Date: 20130924
  Transmission Date: 20140515
  Serious: Yes (Hospitalization)
  Sender: FDA-Public Use
  Company Number: US-AMGEN-USASP2013066685

PATIENT
  Age: 67 Year
  Sex: Female

DRUGS (2)
  1. ENBREL [Suspect]
     Indication: RHEUMATOID ARTHRITIS
     Dosage: 50 MG, QWK
     Route: 065
     Dates: start: 20110411
  2. ARAVA [Concomitant]
     Dosage: 20 MG, QD
     Route: 048
     Dates: start: 20100629

REACTIONS (2)
  - Knee arthroplasty [Recovered/Resolved]
  - Arthralgia [Not Recovered/Not Resolved]
